FAERS Safety Report 24641254 (Version 1)
Quarter: 2024Q4

REPORT INFORMATION
  Report Type: Spontaneous
  Country: US (occurrence: None)
  Receive Date: 20241119
  Receipt Date: 20241119
  Transmission Date: 20250115
  Serious: No
  Sender: Public
  Company Number: None

PATIENT
  Sex: Male
  Weight: 76 kg

DRUGS (11)
  1. MYCOPHENOLIC ACID [Suspect]
     Active Substance: MYCOPHENOLIC ACID
     Indication: Renal transplant
     Dosage: FREQUENCY : TWICE A DAY;?
     Route: 048
     Dates: start: 20240716, end: 202411
  2. MULTIVITAMIN ADULTS [Concomitant]
  3. ATORVASTATIN [Concomitant]
     Active Substance: ATORVASTATIN
  4. BUPROPION [Concomitant]
     Active Substance: BUPROPION
  5. CLONAZEPAM [Concomitant]
     Active Substance: CLONAZEPAM
  6. ENOXAPARIN [Concomitant]
     Active Substance: ENOXAPARIN
  7. FAMOTIDINE [Concomitant]
     Active Substance: FAMOTIDINE
  8. LAMOTRIGINE [Concomitant]
     Active Substance: LAMOTRIGINE
  9. MAGNESIUM OXIDE [Concomitant]
     Active Substance: MAGNESIUM OXIDE
  10. METHYLPHENIDATE [Concomitant]
     Active Substance: METHYLPHENIDATE
  11. PHOSPHA 250 NEUTRAL TABLETS [Concomitant]

REACTIONS (1)
  - Colitis [None]

NARRATIVE: CASE EVENT DATE: 20241001
